FAERS Safety Report 18381310 (Version 1)
Quarter: 2020Q4

REPORT INFORMATION
  Report Type: Spontaneous
  Country: US (occurrence: US)
  Receive Date: 20201013
  Receipt Date: 20201013
  Transmission Date: 20210114
  Serious: Yes (Death)
  Sender: FDA-Public Use
  Company Number: None

PATIENT
  Age: 41 Year
  Sex: Female
  Weight: 68.1 kg

DRUGS (19)
  1. DOLUTEGRAVIR [Concomitant]
     Active Substance: DOLUTEGRAVIR
  2. MEROPENEM. [Concomitant]
     Active Substance: MEROPENEM
  3. DIPHENHYDRAMINE. [Suspect]
     Active Substance: DIPHENHYDRAMINE
     Indication: ANTIALLERGIC THERAPY
     Dosage: ?          OTHER FREQUENCY:ONCE EVERY 21 DAYS;?
     Route: 042
     Dates: start: 20200813, end: 20201011
  4. CISPLATIN. [Concomitant]
     Active Substance: CISPLATIN
  5. AVASTIN [Concomitant]
     Active Substance: BEVACIZUMAB
  6. ONDANSETRON [Concomitant]
     Active Substance: ONDANSETRON
  7. ZOSYN [Concomitant]
     Active Substance: PIPERACILLIN SODIUM\TAZOBACTAM SODIUM
  8. DEXAMETHASONE. [Concomitant]
     Active Substance: DEXAMETHASONE
  9. FOSAPREPITANT [Concomitant]
     Active Substance: FOSAPREPITANT
  10. FAMOTIDINE. [Concomitant]
     Active Substance: FAMOTIDINE
  11. NEULASTA [Suspect]
     Active Substance: PEGFILGRASTIM
     Indication: CERVIX CARCINOMA
     Dosage: ?          OTHER FREQUENCY:ONCE EVERY 21 DAYS;?
     Route: 058
     Dates: start: 20200826, end: 20201011
  12. D+C+E+T ALAFENAMIDE [Concomitant]
  13. APAP [Concomitant]
     Active Substance: ACETAMINOPHEN
  14. ENOXAPARIN [Concomitant]
     Active Substance: ENOXAPARIN
  15. METOCLOPRAMIDE. [Concomitant]
     Active Substance: METOCLOPRAMIDE
  16. SYMTUZA [Concomitant]
     Active Substance: COBICISTAT\DARUNAVIR\EMTRICITABINE\TENOFOVIR ALAFENAMIDE
  17. PACLITAZEL [Concomitant]
  18. AMLODIPINE [Concomitant]
     Active Substance: AMLODIPINE BESYLATE
  19. OXYCODONE-ACETAMINOPHEN [Concomitant]
     Active Substance: ACETAMINOPHEN\OXYCODONE HYDROCHLORIDE

REACTIONS (1)
  - Death [None]

NARRATIVE: CASE EVENT DATE: 20201011
